FAERS Safety Report 16846013 (Version 1)
Quarter: 2019Q3

REPORT INFORMATION
  Report Type: Spontaneous
  Country: US (occurrence: US)
  Receive Date: 20190924
  Receipt Date: 20190924
  Transmission Date: 20191005
  Serious: No
  Sender: FDA-Public Use
  Company Number: US-MAYNE PHARMA-2018MYN001361

PATIENT

DRUGS (1)
  1. CLONIDINE. [Suspect]
     Active Substance: CLONIDINE
     Indication: HYPERTENSION
     Dosage: 0.1 MG PATCH
     Route: 062
     Dates: start: 201807

REACTIONS (4)
  - Blood pressure increased [Unknown]
  - Palpitations [Unknown]
  - Drug ineffective [Unknown]
  - Product packaging issue [Unknown]

NARRATIVE: CASE EVENT DATE: 201808
